FAERS Safety Report 7770088-9 (Version None)
Quarter: 2011Q3

REPORT INFORMATION
  Report Type: 
  Country: None (occurrence: None)
  Receive Date: 20110922
  Receipt Date: 20110201
  Transmission Date: 20111222
  Serious: No
  Sender: FDA-Public Use
  Company Number: US-ASTRAZENECA-2011SE05564

PATIENT
  Age: 49 Year
  Sex: Male
  Weight: 93 kg

DRUGS (5)
  1. TRAMADOL HCL [Concomitant]
  2. SEROQUEL XR [Suspect]
     Indication: SCHIZOAFFECTIVE DISORDER
     Route: 048
  3. SEROQUEL XR [Suspect]
     Indication: BIPOLAR DISORDER
     Route: 048
  4. WELLBUTRIN [Concomitant]
  5. GABAPENTIN [Concomitant]

REACTIONS (2)
  - DRUG DOSE OMISSION [None]
  - DRUG LEVEL DECREASED [None]
